FAERS Safety Report 14630786 (Version 1)
Quarter: 2018Q1

REPORT INFORMATION
  Report Type: Spontaneous
  Country: GB (occurrence: GB)
  Receive Date: 20180313
  Receipt Date: 20180313
  Transmission Date: 20180509
  Serious: Yes (Other)
  Sender: FDA-Public Use
  Company Number: GB-ASTRAZENECA-2018SE28684

PATIENT
  Age: 63 Year
  Sex: Male
  Weight: 76.2 kg

DRUGS (2)
  1. OMEPRAZOLE. [Suspect]
     Active Substance: OMEPRAZOLE
     Route: 048
  2. COLPERMIN [Suspect]
     Active Substance: PEPPERMINT OIL
     Indication: IRRITABLE BOWEL SYNDROME
     Route: 048
     Dates: start: 20180124, end: 20180213

REACTIONS (3)
  - Inhibitory drug interaction [Unknown]
  - Gastrooesophageal reflux disease [Recovered/Resolved]
  - Pain [Recovered/Resolved]

NARRATIVE: CASE EVENT DATE: 20180124
